FAERS Safety Report 5817316-4 (Version None)
Quarter: 2008Q3

REPORT INFORMATION
  Report Type: 
  Country: None (occurrence: None)
  Receive Date: 20080722
  Receipt Date: 20080720
  Transmission Date: 20090109
  Serious: Yes (Other)
  Sender: FDA-Public Use
  Company Number: D0058127A

PATIENT
  Age: 36 Year
  Sex: Male
  Weight: 60 kg

DRUGS (5)
  1. ZIAGEN [Suspect]
     Route: 048
  2. ALCOHOL [Suspect]
     Route: 048
  3. CARBAMAZEPINE [Suspect]
     Dosage: 16000MG SINGLE DOSE
     Route: 048
  4. KALETRA [Suspect]
     Route: 048
  5. ZERIT [Suspect]
     Route: 065

REACTIONS (4)
  - BREATH ODOUR [None]
  - COMA [None]
  - MYDRIASIS [None]
  - SUICIDE ATTEMPT [None]
